FAERS Safety Report 16852675 (Version 1)
Quarter: 2019Q3

REPORT INFORMATION
  Report Type: Spontaneous
  Country: DK (occurrence: DK)
  Receive Date: 20190925
  Receipt Date: 20190925
  Transmission Date: 20191005
  Serious: Yes (Hospitalization)
  Sender: FDA-Public Use
  Company Number: DK-TAKEDA-2019TUS053722

PATIENT
  Age: 62 Year
  Sex: Male

DRUGS (1)
  1. ALUNBRIG [Suspect]
     Active Substance: BRIGATINIB
     Indication: LUNG CANCER METASTATIC
     Dosage: 30 MILLIGRAM, QD
     Route: 048
     Dates: start: 20190508, end: 201908

REACTIONS (3)
  - Nausea [Unknown]
  - Blood creatine phosphokinase increased [Unknown]
  - Somnolence [Unknown]

NARRATIVE: CASE EVENT DATE: 20190508
